FAERS Safety Report 7370051-6 (Version None)
Quarter: 2011Q1

REPORT INFORMATION
  Report Type: 
  Country: None (occurrence: None)
  Receive Date: 20110323
  Receipt Date: 20110201
  Transmission Date: 20110831
  Serious: No
  Sender: FDA-Public Use
  Company Number: US-BAYER-2011-011624

PATIENT
  Sex: Female
  Weight: 74 kg

DRUGS (1)
  1. ALEVE (CAPLET) [Suspect]
     Dosage: UNK, BID, UNKNOWN BOTTLE COUNT
     Dates: start: 20101101

REACTIONS (1)
  - NO ADVERSE EVENT [None]
